FAERS Safety Report 5286654-9 (Version None)
Quarter: 2007Q2

REPORT INFORMATION
  Report Type: 
  Country: None (occurrence: None)
  Receive Date: 20070404
  Receipt Date: 20070328
  Transmission Date: 20071010
  Serious: Yes (Hospitalization, Other)
  Sender: FDA-Public Use
  Company Number: CN-GLAXOSMITHKLINE-B0464969A

PATIENT
  Age: 55 Year
  Sex: Male

DRUGS (2)
  1. LAMICTAL [Suspect]
     Indication: EPILEPSY
     Route: 048
     Dates: start: 20070101, end: 20070324
  2. TOPAMAX [Concomitant]
     Dosage: 225MG PER DAY

REACTIONS (5)
  - DERMATITIS EXFOLIATIVE [None]
  - ERYTHEMA MULTIFORME [None]
  - OLIGURIA [None]
  - RASH [None]
  - RENAL IMPAIRMENT [None]
